FAERS Safety Report 19909141 (Version 1)
Quarter: 2021Q4

REPORT INFORMATION
  Report Type: Spontaneous
  Country: US (occurrence: US)
  Receive Date: 20211001
  Receipt Date: 20211001
  Transmission Date: 20220303
  Serious: No
  Sender: FDA-Public Use
  Company Number: US-PFIZER INC-202101161599

PATIENT
  Age: 48 Year
  Sex: Female

DRUGS (1)
  1. XELJANZ XR [Suspect]
     Active Substance: TOFACITINIB CITRATE
     Dosage: 11 MG
     Dates: start: 20210201

REACTIONS (8)
  - Drug ineffective [Unknown]
  - Fatigue [Unknown]
  - Rash [Unknown]
  - Arthralgia [Unknown]
  - Joint swelling [Unknown]
  - Joint lock [Unknown]
  - Tendonitis [Unknown]
  - Pain [Unknown]

NARRATIVE: CASE EVENT DATE: 20210101
